FAERS Safety Report 25491170 (Version 1)
Quarter: 2025Q2

REPORT INFORMATION
  Report Type: Spontaneous
  Country: IN (occurrence: IN)
  Receive Date: 20250629
  Receipt Date: 20250629
  Transmission Date: 20250716
  Serious: Yes (Hospitalization)
  Sender: OXFORD PHARMACEUTICALS, LLC
  Company Number: IN-Oxford Pharmaceuticals, LLC-2179573

PATIENT
  Age: 40 Year
  Sex: Male

DRUGS (2)
  1. AMLODIPINE BESYLATE [Suspect]
     Active Substance: AMLODIPINE BESYLATE
     Indication: Product used for unknown indication
  2. NIFEDIPINE [Suspect]
     Active Substance: NIFEDIPINE

REACTIONS (9)
  - Intentional overdose [Recovered/Resolved]
  - Somnolence [Recovered/Resolved]
  - Blood pressure systolic increased [Recovered/Resolved]
  - Lethargy [Recovered/Resolved]
  - Oxygen saturation decreased [Recovered/Resolved]
  - Blood pressure decreased [Recovered/Resolved]
  - Heart rate increased [Recovered/Resolved]
  - Hyperglycaemia [Unknown]
  - Toxicity to various agents [Recovered/Resolved]
